FAERS Safety Report 11540812 (Version 2)
Quarter: 2016Q1

REPORT INFORMATION
  Report Type: Report from Study
  Country: JP (occurrence: JP)
  Receive Date: 20150923
  Receipt Date: 20160322
  Transmission Date: 20160525
  Serious: No
  Sender: FDA-Public Use
  Company Number: JP-JNJFOC-20150305241

PATIENT
  Sex: Female
  Weight: 43 kg

DRUGS (14)
  1. STELARA [Suspect]
     Active Substance: USTEKINUMAB
     Indication: PSORIASIS
     Route: 058
     Dates: start: 20110921, end: 20110921
  2. ANTEBATE [Concomitant]
     Active Substance: BETAMETHASONE DIPROPIONATE
     Route: 061
     Dates: start: 20110824
  3. OXAROL [Concomitant]
     Active Substance: MAXACALCITOL
     Route: 061
     Dates: start: 20110824
  4. STELARA [Suspect]
     Active Substance: USTEKINUMAB
     Indication: PSORIASIS
     Route: 058
     Dates: start: 20120530, end: 20120530
  5. STELARA [Suspect]
     Active Substance: USTEKINUMAB
     Indication: PSORIASIS
     Route: 058
     Dates: start: 20111214, end: 20111214
  6. ISCOTIN [Concomitant]
     Active Substance: ISONIAZID
     Indication: PROPHYLAXIS
     Route: 048
     Dates: start: 20110824, end: 20120331
  7. ALESION [Concomitant]
     Active Substance: EPINASTINE HYDROCHLORIDE
     Indication: PSORIASIS
     Route: 048
     Dates: start: 20111214, end: 20120509
  8. STELARA [Suspect]
     Active Substance: USTEKINUMAB
     Indication: PSORIASIS
     Route: 058
     Dates: start: 20110824, end: 20110824
  9. URSO [Concomitant]
     Active Substance: URSODIOL
     Route: 048
     Dates: start: 20110824, end: 20120331
  10. TALION [Concomitant]
     Active Substance: BEPOTASTINE
     Indication: PSORIASIS
     Route: 048
     Dates: end: 20111224
  11. FULMETA [Concomitant]
     Active Substance: MOMETASONE
     Indication: PSORIASIS
     Route: 061
     Dates: start: 20120118
  12. STELARA [Suspect]
     Active Substance: USTEKINUMAB
     Indication: PSORIASIS
     Route: 058
     Dates: start: 20120307, end: 20120307
  13. STELARA [Suspect]
     Active Substance: USTEKINUMAB
     Indication: PSORIASIS
     Route: 058
     Dates: start: 20120815
  14. BONALFA [Concomitant]
     Indication: PSORIASIS
     Route: 061
     Dates: start: 20110824

REACTIONS (1)
  - Arthritis [Recovering/Resolving]
